FAERS Safety Report 9449624 (Version 1)
Quarter: 2013Q3

REPORT INFORMATION
  Report Type: Spontaneous
  Country: US (occurrence: US)
  Receive Date: 20130809
  Receipt Date: 20130809
  Transmission Date: 20140515
  Serious: Yes (Other)
  Sender: FDA-Public Use
  Company Number: US-PFIZER INC-2013228809

PATIENT
  Age: 66 Year
  Sex: Female
  Weight: 97.96 kg

DRUGS (4)
  1. LYRICA [Suspect]
     Indication: DIABETIC NEUROPATHY
     Dosage: UNK
     Dates: start: 201304, end: 20130801
  2. EFEXOR XR [Concomitant]
     Dosage: UNK
  3. LIPITOR [Concomitant]
     Dosage: UNK
  4. DETROL LA [Concomitant]
     Dosage: UNK

REACTIONS (2)
  - Biliary colic [Unknown]
  - Burning sensation [Not Recovered/Not Resolved]
